FAERS Safety Report 6868029-1 (Version None)
Quarter: 2010Q3

REPORT INFORMATION
  Report Type: 
  Country: None (occurrence: None)
  Receive Date: 20100722
  Receipt Date: 20100714
  Transmission Date: 20110219
  Serious: Yes (Death, Other)
  Sender: FDA-Public Use
  Company Number: US-WYE-H16201010

PATIENT
  Sex: Female
  Weight: 56.75 kg

DRUGS (6)
  1. TORISEL [Suspect]
     Indication: RENAL CELL CARCINOMA
     Dosage: UNKNOWN
     Route: 042
     Dates: start: 20100505, end: 20100505
  2. DIOVAN [Concomitant]
     Indication: HYPERTENSION
     Dosage: UNKNOWN
  3. SYNTHROID [Concomitant]
     Indication: THYROID DISORDER
     Dosage: UNKNOWN
  4. SUTENT [Suspect]
     Indication: RENAL CELL CARCINOMA
     Route: 048
     Dates: start: 20100101, end: 20100101
  5. SUTENT [Suspect]
     Route: 048
     Dates: start: 20100101, end: 20100101
  6. SUTENT [Suspect]
     Route: 048
     Dates: start: 20100101, end: 20100501

REACTIONS (2)
  - ASTHENIA [None]
  - MALAISE [None]
